FAERS Safety Report 8028399-8 (Version None)
Quarter: 2012Q1

REPORT INFORMATION
  Report Type: 
  Country: None (occurrence: None)
  Receive Date: 20120104
  Receipt Date: 20111223
  Transmission Date: 20120608
  Serious: Yes (Hospitalization)
  Sender: FDA-Public Use
  Company Number: 2011SP028496

PATIENT
  Age: 56 Year
  Sex: Female
  Weight: 70 kg

DRUGS (2)
  1. TEMOZOLOMIDE [Suspect]
     Indication: GLIOBLASTOMA MULTIFORME
     Dosage: 140 MG;PO 270 MG
     Route: 048
     Dates: start: 20091209, end: 20091213
  2. TEMOZOLOMIDE [Suspect]
     Indication: GLIOBLASTOMA MULTIFORME
     Dosage: 140 MG;PO 270 MG
     Route: 048
     Dates: start: 20090928, end: 20091113

REACTIONS (1)
  - INTERSTITIAL LUNG DISEASE [None]
